FAERS Safety Report 11078409 (Version 1)
Quarter: 2015Q2

REPORT INFORMATION
  Report Type: Spontaneous
  Country: FR (occurrence: None)
  Receive Date: 20150428
  Receipt Date: 20150428
  Transmission Date: 20150821
  Serious: Yes (Life-Threatening)
  Sender: FDA-Public Use
  Company Number: FK201501919

PATIENT
  Age: 46 Year
  Sex: Female

DRUGS (7)
  1. SUFENTANIL MYLAN [Suspect]
     Active Substance: SUFENTANIL
     Indication: INDUCTION OF ANAESTHESIA
     Dosage: 25 UG, 1 IN 1 TOTAL, INTRAVENOUS (NOT OTHERWISE SPECIFIED)
     Route: 042
     Dates: start: 20150311, end: 20150311
  2. PARACETAMOL MACOPHARMA [Suspect]
     Active Substance: ACETAMINOPHEN
     Indication: INDUCTION OF ANAESTHESIA
     Dosage: 1 GM, 1 IN 1 TOTAL
     Route: 042
     Dates: start: 20150311, end: 20150311
  3. PROPOFOL FRESENIUS (NOT SPECIFIED) (PROPOFOL) (PROPOFOL) [Suspect]
     Active Substance: PROPOFOL
     Indication: INDUCTION OF ANAESTHESIA
     Dosage: 200 MG, 1 IN 1 TOTAL, INTRAVENOUS (NOT OTHERWISE SPECIFIED)
     Route: 042
     Dates: start: 20150311, end: 20150311
  4. LIDOCAINE AGUETTANT [Suspect]
     Active Substance: LIDOCAINE
     Indication: INDUCTION OF ANAESTHESIA
     Dosage: 200 MG, 1 IN 1 TOTAL, INTRAVENOUS (NOT OTHERWISE SPECIFIED)
     Dates: start: 20150311, end: 20150311
  5. AMOXICILLIN/CLAVULANIC ACID [Suspect]
     Active Substance: AMOXICILLIN\CLAVULANIC ACID
     Indication: INDUCTION OF ANAESTHESIA
     Dosage: 2 GM, 1 IN 1 TOTAL, INTRAVENOUS (NOT OTHERWISE SPECIFIED)?
     Route: 042
     Dates: start: 20150311, end: 20150311
  6. PROFENID (KETOPROFEN) [Suspect]
     Active Substance: KETOPROFEN
     Indication: INDUCTION OF ANAESTHESIA
     Dosage: 100 MG, 1 IN 1 TOTAL, INTRAVENOUS (NOT OTHERWISE SPECIFIED)
     Route: 042
     Dates: start: 20150311, end: 20150311
  7. DEXAMETHASONE (DEXAMETHASONE) (DEXAMETHASONE) [Suspect]
     Active Substance: DEXAMETHASONE
     Indication: INDUCTION OF ANAESTHESIA
     Dosage: 8 MG, 1 IN 1 TOTAL, INTRAVENOUS (NOT OTHERWISE SPECIFIED)
     Route: 042
     Dates: start: 20150311, end: 20150311

REACTIONS (2)
  - Cardio-respiratory arrest [None]
  - Stress cardiomyopathy [None]

NARRATIVE: CASE EVENT DATE: 20150311
